FAERS Safety Report 8524901-8 (Version None)
Quarter: 2012Q3

REPORT INFORMATION
  Report Type: 
  Country: None (occurrence: None)
  Receive Date: 20120720
  Receipt Date: 20120712
  Transmission Date: 20120928
  Serious: Yes (Other)
  Sender: FDA-Public Use
  Company Number: JP-009507513-1206USA04154

PATIENT

DRUGS (1)
  1. FAMOTIDINE [Suspect]
     Dosage: 0.5 A?G/KG, UNK
     Route: 048

REACTIONS (2)
  - PFAPA SYNDROME [None]
  - DRUG INEFFECTIVE FOR UNAPPROVED INDICATION [None]
